FAERS Safety Report 6653517-3 (Version None)
Quarter: 2010Q1

REPORT INFORMATION
  Report Type: 
  Country: None (occurrence: None)
  Receive Date: 20100326
  Receipt Date: 20100323
  Transmission Date: 20100710
  Serious: Yes (Hospitalization)
  Sender: FDA-Public Use
  Company Number: BE-AMGEN-KDL386173

PATIENT
  Age: 24 Year
  Sex: Female

DRUGS (1)
  1. NEULASTA [Suspect]
     Indication: DRUG USE FOR UNKNOWN INDICATION
     Route: 058
     Dates: start: 20100113, end: 20100113

REACTIONS (4)
  - DYSPNOEA [None]
  - PRURITUS [None]
  - RASH [None]
  - TONGUE OEDEMA [None]
